FAERS Safety Report 13422476 (Version 1)
Quarter: 2017Q2

REPORT INFORMATION
  Report Type: Spontaneous
  Country: US (occurrence: US)
  Receive Date: 20170408
  Receipt Date: 20170408
  Transmission Date: 20170830
  Serious: No
  Sender: FDA-Public Use
  Company Number: None

PATIENT
  Age: 56 Year
  Sex: Male
  Weight: 100.78 kg

DRUGS (13)
  1. K-DUR [Concomitant]
     Active Substance: POTASSIUM CHLORIDE
  2. DESOXYN [Concomitant]
     Active Substance: METHAMPHETAMINE HYDROCHLORIDE
  3. LAMOTRIGENE [Concomitant]
     Active Substance: LAMOTRIGINE
  4. INVOKANA [Suspect]
     Active Substance: CANAGLIFLOZIN
     Indication: TYPE 2 DIABETES MELLITUS
     Route: 048
  5. GLIMIPERIDE [Concomitant]
     Active Substance: GLIMEPIRIDE
  6. CELEXA [Concomitant]
     Active Substance: CITALOPRAM HYDROBROMIDE
  7. LIPITOR [Concomitant]
     Active Substance: ATORVASTATIN CALCIUM
  8. PROVIGIL [Concomitant]
     Active Substance: MODAFINIL
  9. ITORADOL [Concomitant]
  10. V-PAP [Concomitant]
  11. LASIX [Concomitant]
     Active Substance: FUROSEMIDE
  12. METFORMIN [Concomitant]
     Active Substance: METFORMIN HYDROCHLORIDE
  13. LEVOTHYROXINE. [Concomitant]
     Active Substance: LEVOTHYROXINE

REACTIONS (3)
  - Arthralgia [None]
  - Nerve injury [None]
  - Foot fracture [None]

NARRATIVE: CASE EVENT DATE: 20170224
